FAERS Safety Report 16510224 (Version 2)
Quarter: 2020Q1

REPORT INFORMATION
  Report Type: Report from Study
  Country: US (occurrence: US)
  Receive Date: 20190701
  Receipt Date: 20200117
  Transmission Date: 20200409
  Serious: Yes (Hospitalization, Disabling, Other)
  Sender: FDA-Public Use
  Company Number: US-PFIZER INC-2012303670

PATIENT
  Age: 62 Year
  Sex: Female
  Weight: 60.32 kg

DRUGS (14)
  1. AMBISOME [Suspect]
     Active Substance: AMPHOTERICIN B
     Indication: PNEUMONITIS
     Dosage: 250 ML, 1X/DAY
     Route: 042
     Dates: start: 20120820, end: 20120830
  2. ALLOPURINOL. [Concomitant]
     Active Substance: ALLOPURINOL
     Indication: PROPHYLAXIS
     Dosage: 300 MG, DAILY
     Route: 048
     Dates: start: 20120809
  3. TYLENOL [Concomitant]
     Active Substance: ACETAMINOPHEN
     Indication: PREMEDICATION
     Dosage: 650 MG, AS NEEDED, PRIOR TO TRANSFUSION
     Route: 048
     Dates: start: 20120809
  4. PF-04449913 [Suspect]
     Active Substance: GLASDEGIB
     Indication: ACUTE MYELOID LEUKAEMIA
     Dosage: 100 MG, ONCE DAILY CONTINUOUS
     Route: 048
     Dates: start: 20120810, end: 20120829
  5. LEVAQUIN [Suspect]
     Active Substance: LEVOFLOXACIN
     Indication: ANTIBIOTIC PROPHYLAXIS
     Dosage: 500 MG, 1X/DAY
     Route: 048
     Dates: start: 20120809, end: 20120830
  6. BENADRYL [Concomitant]
     Active Substance: DIPHENHYDRAMINE HYDROCHLORIDE
     Indication: PREMEDICATION
     Dosage: 25 MG, AS NEEDED , PRIOR TO TRANSFUSION
     Route: 048
     Dates: start: 20120809
  7. PROTONIX [Concomitant]
     Active Substance: PANTOPRAZOLE SODIUM
     Indication: PROPHYLAXIS
     Dosage: 40 MG, DAILY
     Route: 048
     Dates: start: 20120809
  8. PRBC [Concomitant]
     Active Substance: HUMAN RED BLOOD CELL
     Indication: ANAEMIA
     Dosage: 2 UNITS, AS NEEDED
     Route: 042
     Dates: start: 20120810, end: 20120810
  9. SENNA [Concomitant]
     Active Substance: SENNA LEAF\SENNOSIDES\SENNOSIDES A AND B
     Indication: CONSTIPATION
     Dosage: 2 DF, (1 TABLETS, TWICE DAILY (BID) AS NEEDED
     Route: 048
     Dates: start: 20120810
  10. CYTARABINE. [Suspect]
     Active Substance: CYTARABINE
     Indication: ACUTE MYELOID LEUKAEMIA
     Dosage: 100 MG/ML, CYCLIC (INDUCTION: CONTINUOUS INFUSION ON DAYS 1-7)
     Route: 042
     Dates: start: 20120813, end: 20120819
  11. DAUNORUBICIN [Suspect]
     Active Substance: DAUNORUBICIN
     Indication: ACUTE MYELOID LEUKAEMIA
     Dosage: 60 MG/ML, CYCLIC (ONCE DAILY ON DAY 1-3)
     Route: 040
     Dates: start: 20120813, end: 20120815
  12. NORMAL SALINE [Concomitant]
     Active Substance: SODIUM CHLORIDE
     Indication: FLUID REPLACEMENT
     Dosage: 100 ML/HR CONTINUOUS
     Route: 042
     Dates: start: 20120809
  13. NORMAL SALINE [Concomitant]
     Active Substance: SODIUM CHLORIDE
     Dosage: 75 ML/HR ONCE
     Route: 042
     Dates: start: 20120809, end: 20120809
  14. LIDOCAINE. [Concomitant]
     Active Substance: LIDOCAINE
     Indication: PREMEDICATION
     Dosage: 1% 20 ML, SINGLE, ONCE
     Route: 030
     Dates: start: 20120809, end: 20120809

REACTIONS (1)
  - Polyneuropathy [Recovered/Resolved with Sequelae]

NARRATIVE: CASE EVENT DATE: 20120827
